FAERS Safety Report 24693254 (Version 1)
Quarter: 2024Q4

REPORT INFORMATION
  Report Type: Spontaneous
  Country: CN (occurrence: CN)
  Receive Date: 20241203
  Receipt Date: 20241203
  Transmission Date: 20250114
  Serious: Yes (Other)
  Sender: BEIGENE
  Company Number: CN-BEIGENE-BGN-2024-019182

PATIENT

DRUGS (2)
  1. TISLELIZUMAB [Suspect]
     Active Substance: TISLELIZUMAB
     Indication: Lung neoplasm
     Dosage: 200 MILLIGRAM
     Route: 041
     Dates: start: 20241031
  2. PEMETREXED DISODIUM [Suspect]
     Active Substance: PEMETREXED DISODIUM
     Indication: Lung neoplasm
     Dosage: 900 MILLIGRAM
     Route: 041
     Dates: start: 20241031

REACTIONS (2)
  - Neutropenia [Recovering/Resolving]
  - Lymphocyte percentage decreased [Unknown]

NARRATIVE: CASE EVENT DATE: 20241107
